FAERS Safety Report 8122913-X (Version None)
Quarter: 2012Q1

REPORT INFORMATION
  Report Type: 
  Country: None (occurrence: None)
  Receive Date: 20120208
  Receipt Date: 20120203
  Transmission Date: 20120608
  Serious: Yes (Congenital Anomaly, Other)
  Sender: FDA-Public Use
  Company Number: US-TEVA-321367USA

PATIENT
  Sex: Male

DRUGS (4)
  1. VENLAFAXINE HCL [Concomitant]
  2. PROVIGIL [Suspect]
     Route: 064
  3. OBETROL [Concomitant]
  4. ARIPIPRAZOLE [Concomitant]

REACTIONS (4)
  - CONGENITAL EYE DISORDER [None]
  - CONGENITAL HEART VALVE DISORDER [None]
  - WOLFF-PARKINSON-WHITE SYNDROME CONGENITAL [None]
  - DEVELOPMENTAL DELAY [None]
